FAERS Safety Report 12204460 (Version 2)
Quarter: 2016Q1

REPORT INFORMATION
  Report Type: Spontaneous
  Country: US (occurrence: US)
  Receive Date: 20160323
  Receipt Date: 20160323
  Transmission Date: 20160526
  Serious: No
  Sender: FDA-Public Use
  Company Number: US-BAYER-2016-050913

PATIENT
  Sex: Female
  Weight: 107.94 kg

DRUGS (10)
  1. BAYER GENUINE ASPIRIN [Suspect]
     Active Substance: ASPIRIN
  2. ALBUTEROL. [Concomitant]
     Active Substance: ALBUTEROL
     Dosage: 1 PUFF(S), UNK
     Route: 048
  3. CLARITIN [Concomitant]
     Active Substance: LORATADINE
  4. TYLENOL 8 HR [Concomitant]
     Active Substance: ACETAMINOPHEN
  5. LACTASE [Concomitant]
     Active Substance: LACTASE
     Route: 048
  6. MIDOL EXTENDED RELIEF [Suspect]
     Active Substance: NAPROXEN SODIUM
  7. FLONASE [Concomitant]
     Active Substance: FLUTICASONE PROPIONATE
     Dosage: 1 DF, UNK
     Route: 045
  8. LYRICA [Concomitant]
     Active Substance: PREGABALIN
     Dosage: 1 DF, (EVERY BED TIME)
     Route: 048
  9. MULTIVITAMINS [Concomitant]
     Active Substance: VITAMINS
     Dosage: UNK UNK, QD
     Route: 048
  10. LYRICA [Concomitant]
     Active Substance: PREGABALIN
     Dosage: 1 DF, BID
     Route: 048

REACTIONS (2)
  - Abdominal discomfort [None]
  - Mental disorder [None]
